FAERS Safety Report 12414865 (Version 1)
Quarter: 2016Q2

REPORT INFORMATION
  Report Type: Spontaneous
  Country: SE (occurrence: SE)
  Receive Date: 20160529
  Receipt Date: 20160529
  Transmission Date: 20160815
  Serious: Yes (Other)
  Sender: FDA-Public Use
  Company Number: SE-009507513-1605SWE011681

PATIENT
  Age: 42 Year
  Sex: Female

DRUGS (8)
  1. LYRICA [Concomitant]
     Active Substance: PREGABALIN
     Dates: start: 2013
  2. FRISIUM [Concomitant]
     Active Substance: CLOBAZAM
     Dates: start: 2014
  3. AERIUS [Suspect]
     Active Substance: DESLORATADINE
     Indication: RHINITIS ALLERGIC
     Dosage: AS NECESSARY
     Route: 048
     Dates: start: 20160518
  4. EMADINE [Concomitant]
     Active Substance: EMEDASTINE DIFUMARATE
     Dates: start: 2013
  5. ERGENYL [Concomitant]
     Active Substance: VALPROIC ACID
     Dates: start: 2013
  6. LAMICTAL [Concomitant]
     Active Substance: LAMOTRIGINE
     Dates: start: 2015
  7. NASONEX [Concomitant]
     Active Substance: MOMETASONE FUROATE
     Route: 045
     Dates: start: 2015
  8. AERIUS [Suspect]
     Active Substance: DESLORATADINE
     Indication: CONJUNCTIVITIS ALLERGIC

REACTIONS (4)
  - Depressed level of consciousness [Recovered/Resolved]
  - Amnesia [Recovered/Resolved]
  - Diplopia [Recovered/Resolved]
  - Dizziness [Recovered/Resolved]

NARRATIVE: CASE EVENT DATE: 20160518
